FAERS Safety Report 8966350 (Version 4)
Quarter: 2014Q2

REPORT INFORMATION
  Report Type: Report from Study
  Country: GB (occurrence: GB)
  Receive Date: 20121217
  Receipt Date: 20140506
  Transmission Date: 20141212
  Serious: Yes (Hospitalization)
  Sender: FDA-Public Use
  Company Number: PHHO2012GB017912

PATIENT
  Sex: 0

DRUGS (2)
  1. FTY 720 [Suspect]
     Indication: MULTIPLE SCLEROSIS
     Dosage: 0.5 MG, QD
     Route: 048
     Dates: start: 20110714
  2. CO CODAMOL [Concomitant]
     Indication: PAIN
     Dosage: PRN
     Dates: start: 20121201, end: 20121212

REACTIONS (1)
  - Abdominal pain lower [Recovering/Resolving]
